FAERS Safety Report 5366136-6 (Version None)
Quarter: 2007Q2

REPORT INFORMATION
  Report Type: 
  Country: None (occurrence: None)
  Receive Date: 20070530
  Receipt Date: 20070326
  Transmission Date: 20071010
  Serious: No
  Sender: FDA-Public Use
  Company Number: 2005PV002250

PATIENT
  Age: 65 Year
  Sex: Female
  Weight: 78.4723 kg

DRUGS (9)
  1. BYETTA [Suspect]
     Indication: DIABETES MELLITUS NON-INSULIN-DEPENDENT
     Dosage: 10 MCG;BID;SC   5 MCG;BID;SC
     Route: 058
     Dates: start: 20050701, end: 20050801
  2. BYETTA [Suspect]
     Indication: DIABETES MELLITUS NON-INSULIN-DEPENDENT
     Dosage: 10 MCG;BID;SC   5 MCG;BID;SC
     Route: 058
     Dates: start: 20050901
  3. BYETTA [Suspect]
  4. BYETTA [Suspect]
  5. METFORMIN HCL [Concomitant]
  6. AVANDIA [Concomitant]
  7. PRANDIN [Concomitant]
  8. GLIMEPIRIDE [Concomitant]
  9. GLIPIZIDE [Concomitant]

REACTIONS (7)
  - ANOREXIA [None]
  - DECREASED APPETITE [None]
  - FEELING ABNORMAL [None]
  - HUNGER [None]
  - HYPERPHAGIA [None]
  - INCREASED APPETITE [None]
  - WEIGHT DECREASED [None]
